FAERS Safety Report 7754029-6 (Version None)
Quarter: 2011Q3

REPORT INFORMATION
  Report Type: 
  Country: None (occurrence: None)
  Receive Date: 20110915
  Receipt Date: 20110908
  Transmission Date: 20111222
  Serious: Yes (Hospitalization)
  Sender: FDA-Public Use
  Company Number: PHHY2011JP80524

PATIENT
  Sex: Male

DRUGS (8)
  1. GLAKAY [Concomitant]
     Indication: MYELODYSPLASTIC SYNDROME
     Dosage: 45 MG, UNK
     Route: 048
     Dates: start: 20091015
  2. PRIMOBOLAN-DEPOT INJ [Concomitant]
     Dosage: 15 MG, UNK
     Route: 048
     Dates: start: 20070330
  3. EXJADE [Suspect]
     Indication: IRON OVERLOAD
     Dosage: 750 MG, DAILY
     Dates: start: 20100218, end: 20100302
  4. DESFERAL [Concomitant]
     Indication: IRON OVERLOAD
     Dosage: 1000 MG, UNK
     Dates: start: 20070329, end: 20070628
  5. ESPO [Concomitant]
     Indication: PROPHYLAXIS
     Route: 058
  6. HACHIMIJIO-GAN [Concomitant]
     Indication: PROPHYLAXIS
     Route: 048
     Dates: start: 20070913
  7. ALFAROL [Concomitant]
     Dosage: 1 UG, UNK
     Route: 048
     Dates: start: 20091203
  8. ENTOMOL [Concomitant]
     Dosage: 3 G, UNK
     Route: 048
     Dates: start: 20070601

REACTIONS (2)
  - ECZEMA [None]
  - PYREXIA [None]
